FAERS Safety Report 13765595 (Version 1)
Quarter: 2017Q3

REPORT INFORMATION
  Report Type: Spontaneous
  Country: JP (occurrence: JP)
  Receive Date: 20170718
  Receipt Date: 20170718
  Transmission Date: 20171127
  Serious: Yes (Hospitalization)
  Sender: FDA-Public Use
  Company Number: JP-REGENERON PHARMACEUTICALS, INC.-2014-19724

PATIENT

DRUGS (7)
  1. EYLEA [Suspect]
     Active Substance: AFLIBERCEPT
     Dosage: UNK
     Route: 031
     Dates: start: 20140519, end: 20140519
  2. TRANSAMIN [Concomitant]
     Active Substance: TRANEXAMIC ACID
     Indication: BRONCHOPULMONARY ASPERGILLOSIS
     Dosage: 250 MG, TID
     Route: 048
     Dates: start: 20140120
  3. EYLEA [Suspect]
     Active Substance: AFLIBERCEPT
     Indication: AGE-RELATED MACULAR DEGENERATION
     Dosage: UNK
     Route: 031
     Dates: start: 20140421, end: 20140421
  4. MAINTATE [Concomitant]
     Active Substance: BISOPROLOL FUMARATE
     Indication: ATRIAL FIBRILLATION
     Dosage: 0.625 MG, QD
     Route: 048
     Dates: start: 20140409
  5. ADONA                              /00056903/ [Concomitant]
     Active Substance: CARBAZOCHROME SODIUM SULFONATE
     Indication: BRONCHOPULMONARY ASPERGILLOSIS
     Dosage: 30 MG, TID
     Route: 048
     Dates: start: 20140120
  6. WARFARIN [Concomitant]
     Active Substance: WARFARIN
     Indication: ATRIAL FIBRILLATION
     Dosage: 1.5 MG, QD
     Route: 048
     Dates: end: 20140527
  7. SELARA [Concomitant]
     Active Substance: EPLERENONE
     Indication: HYPERTENSION
     Dosage: 25 MG, QD
     Route: 048
     Dates: start: 20130422, end: 20140527

REACTIONS (1)
  - Haemoptysis [Recovered/Resolved]

NARRATIVE: CASE EVENT DATE: 20140526
